FAERS Safety Report 8605806-0 (Version None)
Quarter: 2012Q3

REPORT INFORMATION
  Report Type: 
  Country: None (occurrence: None)
  Receive Date: 20120820
  Receipt Date: 20120813
  Transmission Date: 20120928
  Serious: Yes (Other)
  Sender: FDA-Public Use
  Company Number: IN-GLAXOSMITHKLINE-A0931937B

PATIENT
  Sex: Male
  Weight: 43 kg

DRUGS (3)
  1. RADIOTHERAPY [Concomitant]
     Indication: HEAD AND NECK CANCER
     Dosage: 8GY VARIABLE DOSE
     Route: 061
     Dates: start: 20110412, end: 20110415
  2. LAPATINIB [Suspect]
     Indication: HEAD AND NECK CANCER
     Route: 048
     Dates: start: 20110405
  3. CISPLATIN [Suspect]
     Indication: HEAD AND NECK CANCER
     Dosage: 100MGM2 CYCLIC
     Route: 042
     Dates: start: 20110412

REACTIONS (1)
  - ANAEMIA [None]
